FAERS Safety Report 5432181-5 (Version None)
Quarter: 2007Q3

REPORT INFORMATION
  Report Type: 
  Country: None (occurrence: None)
  Receive Date: 20070830
  Receipt Date: 20070820
  Transmission Date: 20080115
  Serious: Yes (Congenital Anomaly)
  Sender: FDA-Public Use
  Company Number: US-MERCK-0610USA09772

PATIENT

DRUGS (1)
  1. MAXALT [Suspect]
     Route: 064

REACTIONS (1)
  - TRANSPOSITION OF THE GREAT VESSELS [None]
